FAERS Safety Report 7045851-2 (Version None)
Quarter: 2010Q4

REPORT INFORMATION
  Report Type: 
  Country: None (occurrence: None)
  Receive Date: 20101014
  Receipt Date: 20100921
  Transmission Date: 20110411
  Serious: Yes (Other)
  Sender: FDA-Public Use
  Company Number: PHHY2010BR66314

PATIENT
  Age: 61 Year
  Sex: Female
  Weight: 98 kg

DRUGS (10)
  1. ALISKIREN [Suspect]
     Dosage: 300 MG, QD
  2. VALSARTAN [Suspect]
     Dosage: 320 MG, QD
  3. HYDROCHLOROTHIAZIDE [Suspect]
     Dosage: 25 MG
  4. METFORMIN [Suspect]
     Dosage: UNK
  5. ENALAPRIL MALEATE [Concomitant]
     Dosage: 40 MG, QD
  6. FLUOXETINE [Concomitant]
     Dosage: 20 MG, QD
  7. ORLISTAT [Concomitant]
     Dosage: 120 MG, BID
  8. ATORVASTATIN [Concomitant]
     Dosage: 40 MG, QD
  9. ASPIRIN [Concomitant]
     Dosage: 100 MG, QD
  10. INSULIN [Concomitant]
     Dosage: REDUCTION OF INSULIN DOSES

REACTIONS (3)
  - FEELING ABNORMAL [None]
  - HYPOGLYCAEMIA [None]
  - NAUSEA [None]
